FAERS Safety Report 9659207 (Version 3)
Quarter: 2013Q4

REPORT INFORMATION
  Report Type: Report from Study
  Country: JP (occurrence: JP)
  Receive Date: 20131031
  Receipt Date: 20131220
  Transmission Date: 20140711
  Serious: Yes (Life-Threatening)
  Sender: FDA-Public Use
  Company Number: JP-PFIZER INC-2013308952

PATIENT
  Age: 83 Year
  Sex: Female
  Weight: 44.9 kg

DRUGS (1)
  1. AXITINIB [Suspect]
     Indication: RENAL CELL CARCINOMA
     Dosage: 6 MG, 2X/DAY
     Route: 048
     Dates: start: 20130819, end: 20130826

REACTIONS (3)
  - Vomiting [Recovering/Resolving]
  - Pneumonia aspiration [Recovering/Resolving]
  - Cardiac failure [Recovering/Resolving]
